APPROVED DRUG PRODUCT: VASOPRESSIN
Active Ingredient: VASOPRESSIN
Strength: 20UNITS/ML (20UNITS/ML)
Dosage Form/Route: SOLUTION;INTRAVENOUS
Application: N212593 | Product #001
Applicant: AMERICAN REGENT INC
Approved: Aug 3, 2020 | RLD: Yes | RS: Yes | Type: RX